FAERS Safety Report 5798647-3 (Version None)
Quarter: 2008Q3

REPORT INFORMATION
  Report Type: 
  Country: None (occurrence: None)
  Receive Date: 20080702
  Receipt Date: 20080624
  Transmission Date: 20090109
  Serious: Yes (Hospitalization, Other)
  Sender: FDA-Public Use
  Company Number: FR-BRISTOL-MYERS SQUIBB COMPANY-14247001

PATIENT
  Age: 77 Year
  Sex: Male

DRUGS (10)
  1. ENDOXAN [Suspect]
     Indication: NON-HODGKIN'S LYMPHOMA
     Dosage: FIRST CYCLE IN DEC07, SECOND CYCLE GIVEN ON 09JAN08
     Route: 042
     Dates: start: 20071201, end: 20080109
  2. DOXORUBICIN HCL [Suspect]
     Indication: NON-HODGKIN'S LYMPHOMA
     Dosage: FIRST CYCLE IN DEC07, SECOND CYCLE GIVEN ON 09JAN08.
     Route: 042
     Dates: start: 20071201, end: 20080109
  3. ONCOVIN [Suspect]
     Indication: NON-HODGKIN'S LYMPHOMA
     Dosage: FIRST CYCLE IN DEC07, SECOND CYCLE GIVEN ON 09JAN08
     Route: 042
     Dates: start: 20071201, end: 20080109
  4. MABTHERA [Suspect]
     Indication: NON-HODGKIN'S LYMPHOMA
     Dosage: FIRST CYCLE IN DEC07, SECOND CYCLE GIVEN ON 09JAN08
     Route: 042
     Dates: start: 20071201, end: 20080109
  5. CORTANCYL [Suspect]
     Indication: NON-HODGKIN'S LYMPHOMA
     Dosage: FIRST CYCLE IN DEC07, SECOND CYCLE GIVEN ON 09JAN08, STOPPED ON 14JAN2008.
     Route: 048
     Dates: start: 20071201, end: 20080109
  6. TAHOR [Concomitant]
  7. VASTAREL [Concomitant]
     Route: 048
  8. LOSARTAN POTASSIUM AND HYDROCHLOROTHIAZIDE [Concomitant]
     Route: 048
  9. COSOPT [Concomitant]
     Route: 021
  10. ACETAMINOPHEN [Concomitant]
     Route: 048

REACTIONS (8)
  - AGRANULOCYTOSIS [None]
  - CHILLS [None]
  - DIARRHOEA [None]
  - NEUTROPENIA [None]
  - ORAL PAIN [None]
  - PYREXIA [None]
  - RENAL FAILURE [None]
  - VOMITING [None]
